FAERS Safety Report 20375855 (Version 2)
Quarter: 2022Q1

REPORT INFORMATION
  Report Type: Other
  Country: US (occurrence: None)
  Receive Date: 20220125
  Receipt Date: 20220302
  Transmission Date: 20220424
  Serious: No
  Sender: FDA-Public Use
  Company Number: US-ROCHE-3008384

PATIENT
  Sex: Female

DRUGS (17)
  1. OCREVUS [Suspect]
     Active Substance: OCRELIZUMAB
     Indication: Relapsing multiple sclerosis
     Dosage: INFUSE 300MG INTRAVENOUSLY FOR 1 DOSE?DATE OF TREATMENT FOR 1ST HALF INFUSION : 03/AUG/2021 DATE OF
     Route: 042
  2. CLONAZEPAM [Concomitant]
     Active Substance: CLONAZEPAM
  3. TOPAMAX [Concomitant]
     Active Substance: TOPIRAMATE
  4. ACEBUTOLOL [Concomitant]
     Active Substance: ACEBUTOLOL
  5. CLOBETASOL [Concomitant]
     Active Substance: CLOBETASOL
  6. ADDERALL XR [Concomitant]
     Active Substance: AMPHETAMINE ASPARTATE\AMPHETAMINE SULFATE\DEXTROAMPHETAMINE SACCHARATE\DEXTROAMPHETAMINE SULFATE
  7. SENNA PLUS [Concomitant]
     Active Substance: DOCUSATE SODIUM\SENNOSIDES\SENNOSIDES A AND B
  8. LEVOTHYROXINE [Concomitant]
     Active Substance: LEVOTHYROXINE
  9. VITAMIN D2 [Concomitant]
     Active Substance: ERGOCALCIFEROL
  10. IRON [Concomitant]
     Active Substance: IRON
  11. SPIRONOLACTONE [Concomitant]
     Active Substance: SPIRONOLACTONE
  12. NORVASC [Concomitant]
     Active Substance: AMLODIPINE BESYLATE
  13. FISH OIL [Concomitant]
     Active Substance: FISH OIL
  14. CAMBIA [Concomitant]
     Active Substance: DICLOFENAC POTASSIUM
  15. AMANTADINE HYDROCHLORIDE [Concomitant]
     Active Substance: AMANTADINE HYDROCHLORIDE
  16. DULOXETINE [Concomitant]
     Active Substance: DULOXETINE
  17. AUBAGIO [Concomitant]
     Active Substance: TERIFLUNOMIDE

REACTIONS (1)
  - COVID-19 [Unknown]
